FAERS Safety Report 4475813-0 (Version None)
Quarter: 2004Q4

REPORT INFORMATION
  Report Type: 
  Country: None (occurrence: None)
  Receive Date: 20041015
  Receipt Date: 20040913
  Transmission Date: 20050328
  Serious: Yes (Hospitalization)
  Sender: FDA-Public Use
  Company Number: DE-GLAXOSMITHKLINE-D0044667A

PATIENT
  Age: 20 Year
  Sex: Female
  Weight: 65 kg

DRUGS (3)
  1. ELMENDOS [Suspect]
     Indication: PROPHYLAXIS
     Dosage: 25MG PER DAY
     Route: 048
     Dates: start: 20040820
  2. VENLAFAXINE HCL [Concomitant]
     Dosage: 150MG PER DAY
     Route: 048
     Dates: start: 20040511
  3. ZELDOX [Concomitant]
     Dosage: 120MG PER DAY
     Route: 048
     Dates: start: 20040616

REACTIONS (8)
  - ADVERSE EVENT [None]
  - AKATHISIA [None]
  - DIPLOPIA [None]
  - PARKINSON'S DISEASE [None]
  - RESTLESSNESS [None]
  - SEDATION [None]
  - TREMOR [None]
  - VISUAL DISTURBANCE [None]
